FAERS Safety Report 10045321 (Version 12)
Quarter: 2014Q2

REPORT INFORMATION
  Report Type: Spontaneous
  Country: JP (occurrence: JP)
  Receive Date: 20140328
  Receipt Date: 20140624
  Transmission Date: 20141212
  Serious: Yes (Death, Life-Threatening, Other)
  Sender: FDA-Public Use
  Company Number: JP-JNJFOC-20140316896

PATIENT
  Age: 50 Year
  Sex: Male
  Weight: 86 kg

DRUGS (5)
  1. SOVRIAD [Suspect]
     Indication: CHRONIC HEPATITIS C
     Route: 048
     Dates: start: 20140208, end: 20140322
  2. PEGINTRON [Suspect]
     Indication: CHRONIC HEPATITIS C
     Route: 058
     Dates: start: 20140208, end: 20140315
  3. REBETOL [Suspect]
     Indication: CHRONIC HEPATITIS C
     Route: 048
     Dates: start: 20140208, end: 20140322
  4. FLOMOX [Concomitant]
     Indication: PYREXIA
     Route: 048
     Dates: start: 20140315, end: 20140319
  5. FLOMOX [Concomitant]
     Indication: PHARYNGITIS
     Route: 048
     Dates: start: 20140315, end: 20140319

REACTIONS (32)
  - Septic shock [Fatal]
  - Renal failure acute [Fatal]
  - Subarachnoid haemorrhage [Fatal]
  - Disseminated intravascular coagulation [Fatal]
  - Hepatic failure [Fatal]
  - Platelet count decreased [Fatal]
  - Hypocalcaemia [Fatal]
  - Myalgia [Unknown]
  - Muscle spasms [Recovering/Resolving]
  - Oral mucosal erythema [Not Recovered/Not Resolved]
  - Oral pain [Not Recovered/Not Resolved]
  - Chills [Unknown]
  - Diarrhoea [Unknown]
  - Somnolence [Unknown]
  - Pharyngeal erythema [Unknown]
  - Malaise [Unknown]
  - Headache [Unknown]
  - Dry mouth [Unknown]
  - Pharyngeal enanthema [Unknown]
  - Oral herpes [Unknown]
  - Pyrexia [Unknown]
  - Malaise [Unknown]
  - Oedema [Unknown]
  - Decreased appetite [Unknown]
  - Fluid intake reduced [Unknown]
  - Nausea [Unknown]
  - Dizziness [Unknown]
  - Back pain [Unknown]
  - Restlessness [Unknown]
  - Hypoglycaemia [Unknown]
  - Acidosis [Unknown]
  - Stomatitis [Not Recovered/Not Resolved]
